FAERS Safety Report 18707303 (Version 1)
Quarter: 2021Q1

REPORT INFORMATION
  Report Type: Report from Study
  Country: US (occurrence: US)
  Receive Date: 20210106
  Receipt Date: 20210106
  Transmission Date: 20210419
  Serious: No
  Sender: FDA-Public Use
  Company Number: US-CELGENEUS-USA-20201209414

PATIENT
  Age: 67 Year
  Sex: Male
  Weight: 110 kg

DRUGS (46)
  1. ANASTROZOLE. [Concomitant]
     Active Substance: ANASTROZOLE
     Indication: SUPPLEMENTATION THERAPY
     Dosage: 1 MG X 1 X 1 DAYS
     Route: 048
  2. HYDROXYUREA. [Concomitant]
     Active Substance: HYDROXYUREA
     Indication: MYELOFIBROSIS
     Route: 065
     Dates: start: 2007, end: 201111
  3. LENALIDOMIDE [Concomitant]
     Active Substance: LENALIDOMIDE
     Indication: MYELOFIBROSIS
     Dosage: 5 MG
     Route: 065
     Dates: start: 201111, end: 20200116
  4. LISINOPRIL. [Concomitant]
     Active Substance: LISINOPRIL
     Indication: CHRONIC KIDNEY DISEASE
     Dosage: 2.5 MG X 1 X 1 DAYS
     Route: 048
     Dates: end: 20200602
  5. ASPIRIN. [Concomitant]
     Active Substance: ASPIRIN
     Indication: ISCHAEMIC HEART DISEASE PROPHYLAXIS
     Dosage: 81 MG X 1 X 2 DAYS
     Route: 048
     Dates: start: 20200407, end: 20200828
  6. CLINDAMYCIN HCL [Concomitant]
     Active Substance: CLINDAMYCIN HYDROCHLORIDE
     Indication: INFECTION PROPHYLAXIS
     Dosage: 150 MG X PRN
     Route: 048
     Dates: start: 20200407
  7. FERROUS SULFATE. [Concomitant]
     Active Substance: FERROUS SULFATE
     Indication: SUPPLEMENTATION THERAPY
     Dosage: 325 MG X 1 X 1 DAYS
     Route: 048
     Dates: start: 20180723, end: 20200828
  8. OXYCODONE [Concomitant]
     Active Substance: OXYCODONE
     Dosage: 2.5 MG X 1 X 4 HOURS
     Route: 048
     Dates: start: 20200827
  9. SPIRONOLACTONE. [Concomitant]
     Active Substance: SPIRONOLACTONE
     Indication: HYPERTENSION
     Dosage: 25 MG X 1 X 1 DAYS
     Route: 048
     Dates: start: 20170727, end: 20200827
  10. ENOXAPARIN [Concomitant]
     Active Substance: ENOXAPARIN
     Indication: THROMBOSIS PROPHYLAXIS
     Dosage: 30 MG/0.3 ML MG/ML/MIN X 2 X 1 DAYS
     Route: 058
     Dates: end: 20200828
  11. LIOTHYRONINE [Concomitant]
     Active Substance: LIOTHYRONINE
     Indication: THYROID DISORDER
     Dosage: 0.005 MG X 2 X 1 DAYS
     Route: 048
  12. INSULIN GLAGINE [Concomitant]
     Indication: TYPE 2 DIABETES MELLITUS
     Dosage: 12 U X 1 X 1 DAYS
     Route: 058
     Dates: start: 20200826, end: 20200827
  13. NORTRIPTYLINE [Concomitant]
     Active Substance: NORTRIPTYLINE
     Indication: PAIN
     Dosage: 50 MG X 1 X 1 DAYS
     Route: 048
     Dates: start: 20200915
  14. CEPHALEXIN. [Concomitant]
     Active Substance: CEPHALEXIN
     Indication: ADVERSE EVENT
     Dosage: 250 MG X 1 X 1 DAYS
     Route: 048
     Dates: start: 20200825, end: 20200828
  15. SYMBICORT [Concomitant]
     Active Substance: BUDESONIDE\FORMOTEROL FUMARATE DIHYDRATE
     Indication: BRONCHITIS
     Dosage: 1 PUFF X 2 X 1 DAYS
     Route: 055
  16. TESTOSTERONE CYPIONATE. [Concomitant]
     Active Substance: TESTOSTERONE CYPIONATE
     Indication: SUPPLEMENTATION THERAPY
     Dosage: 5 MG X 1 X 1 WEEKS
     Route: 030
  17. AZELASTINE NASAL SPRAY [Concomitant]
     Active Substance: AZELASTINE
     Indication: SEASONAL ALLERGY
     Dosage: 1 SPRAY X 1 X 1 DAYS
     Route: 055
  18. CEPHALEXIN. [Concomitant]
     Active Substance: CEPHALEXIN
     Indication: PRODUCT USED FOR UNKNOWN INDICATION
     Dosage: 250 MG X 1 X 1 DAYS
     Route: 048
  19. ENOXAPARIN [Concomitant]
     Active Substance: ENOXAPARIN
     Indication: THROMBOSIS PROPHYLAXIS
     Dosage: 60 MG/0.6 ML MG/ML/MIN X 1 X 12 HOURS
     Route: 058
     Dates: start: 20200904
  20. FLUTICASONE NASAL SPRAY [Concomitant]
     Active Substance: FLUTICASONE
     Indication: SEASONAL ALLERGY
     Dosage: 1 SPRAY X 1 X 1 DAYS
     Route: 055
     Dates: end: 20200828
  21. POLYETHYLENE GLYCOL [Concomitant]
     Active Substance: POLYETHYLENE GLYCOLS
     Indication: CONSTIPATION PROPHYLAXIS
     Dosage: 17 G X 1 X 1 DAYS
     Route: 048
     Dates: end: 20200828
  22. DULOXETINE. [Concomitant]
     Active Substance: DULOXETINE
     Indication: PAIN
     Dosage: 60 MG X 1 X 1 DAYS
     Route: 048
     Dates: start: 20191121, end: 20200828
  23. APIXABAN [Concomitant]
     Active Substance: APIXABAN
     Indication: PRODUCT USED FOR UNKNOWN INDICATION
     Dosage: 5 MG X 2 X 1 DAYS
     Route: 048
     Dates: end: 20200828
  24. ENOXAPARIN [Concomitant]
     Active Substance: ENOXAPARIN
     Indication: THROMBOSIS PROPHYLAXIS
     Dosage: 100 MG/1 ML MG/ML/MIN X 1 X 12 HOURS
     Route: 058
     Dates: start: 20200829, end: 20200903
  25. MONTELUKAST [Concomitant]
     Active Substance: MONTELUKAST SODIUM
     Indication: BRONCHITIS
     Dosage: 10 MG X 1 X 1 DAYS
     Route: 048
  26. OMEGA?3 FATTY ACIDS?VITAMIN E [Concomitant]
     Indication: SUPPLEMENTATION THERAPY
     Dosage: 2000 MG X 1 X 1 DAYS
     Route: 048
  27. TIOTROPIUM BROMIDE [Concomitant]
     Active Substance: TIOTROPIUM BROMIDE
     Indication: BRONCHITIS
     Dosage: 2 PUFF X 1 X 1 DAYS
     Route: 055
  28. DULOXETINE. [Concomitant]
     Active Substance: DULOXETINE
     Dosage: 30 MG X 1 X 1 DAYS
     Route: 048
     Dates: start: 20200904
  29. LIDOCAINE 5% [Concomitant]
     Active Substance: LIDOCAINE
     Indication: ARTHRALGIA
     Dosage: 700 MG/PATCH PATCH X 1 X 24 HOURS
     Route: 062
     Dates: start: 20200902
  30. OXYCODONE [Concomitant]
     Active Substance: OXYCODONE
     Indication: PAIN
     Dosage: 5 MG X 1 X 8 HOURS
     Route: 048
     Dates: start: 20200213
  31. SPIRONOACTONE [Concomitant]
     Indication: HYPERTENSION
     Dosage: 50 MG X 1 X 1 DAYS
     Route: 048
     Dates: start: 20200828
  32. BISOPROLOL FUMARATE ORAL [Concomitant]
     Indication: HYPERTENSION
     Dosage: 2.5 MG X 1 X 1 DAYS
     Route: 048
  33. CYANOCOBALAMIN. [Concomitant]
     Active Substance: CYANOCOBALAMIN
     Indication: SUPPLEMENTATION THERAPY
     Dosage: 500 MG X 1 X 1 DAYS
     Route: 048
  34. INSULIN DEGLUDEC [Concomitant]
     Active Substance: INSULIN DEGLUDEC
     Indication: TYPE 2 DIABETES MELLITUS
     Dosage: 26 U/ML X 1 X 1 DAYS
     Route: 058
  35. LEVOTHYROXINE SODIUM. [Concomitant]
     Active Substance: LEVOTHYROXINE SODIUM
     Indication: THYROID DISORDER
     Dosage: 0.35 MG X 1 X 1 DAYS
     Route: 048
  36. LIDOCAINE 1% [Concomitant]
     Active Substance: LIDOCAINE
     Indication: PREMEDICATION
     Dosage: 10 ML X ONCE
     Route: 058
     Dates: start: 20200826, end: 20200826
  37. PREGABALIN. [Concomitant]
     Active Substance: PREGABALIN
     Indication: PRODUCT USED FOR UNKNOWN INDICATION
     Dosage: 200 MG X 3 X 1 DAYS
     Route: 048
     Dates: start: 20200224, end: 20200827
  38. FEDRATINIB [Suspect]
     Active Substance: FEDRATINIB
     Indication: PRIMARY MYELOFIBROSIS
     Dosage: 400 MG X 1 X 1 DAYS
     Route: 048
     Dates: start: 20200310, end: 20201025
  39. LIRAGLUTIDE [Concomitant]
     Active Substance: LIRAGLUTIDE
     Indication: TYPE 2 DIABETES MELLITUS
     Dosage: 1.8 MG X 1 X 1 DAYS
     Route: 058
  40. CHOLECALCIFEROL [Concomitant]
     Active Substance: CHOLECALCIFEROL
     Indication: VITAMIN SUPPLEMENTATION
     Dosage: 10000 U X 1 X 1 DAYS
     Route: 048
     Dates: start: 20200407
  41. CYCLOBENZAPRINE. [Concomitant]
     Active Substance: CYCLOBENZAPRINE
     Indication: MUSCLE SPASMS
     Dosage: 10 MG X 3 X 1 DAYS
     Route: 048
     Dates: start: 20191121
  42. GUAIFENESIN. [Concomitant]
     Active Substance: GUAIFENESIN
     Indication: COUGH
     Dosage: 600 MG X 1 X 12 HOURS
     Route: 048
     Dates: start: 20200827, end: 20200828
  43. INSULIN GLARGINE [Concomitant]
     Active Substance: INSULIN GLARGINE
     Indication: TYPE 2 DIABETES MELLITUS
     Dosage: 12 U X ONCE
     Route: 058
     Dates: start: 20200830, end: 20200830
  44. INSULIN LISPRO [Concomitant]
     Active Substance: INSULIN LISPRO
     Indication: TYPE 2 DIABETES MELLITUS
     Dosage: 2 U X 3 X 1 DAYS
     Route: 058
     Dates: start: 20200826, end: 20200826
  45. PREGABALIN. [Concomitant]
     Active Substance: PREGABALIN
     Dosage: 100 MG X 1 X 1 DAYS
     Route: 048
     Dates: start: 20200827
  46. TRAMADOL. [Concomitant]
     Active Substance: TRAMADOL
     Indication: ARTHRALGIA
     Dosage: 50 MG X 1 X 6 HOURS
     Route: 048
     Dates: start: 20200826, end: 20200827

REACTIONS (1)
  - Encephalopathy [Recovered/Resolved]

NARRATIVE: CASE EVENT DATE: 20200830
